FAERS Safety Report 23101592 (Version 2)
Quarter: 2023Q4

REPORT INFORMATION
  Report Type: Spontaneous
  Country: JP (occurrence: JP)
  Receive Date: 20231025
  Receipt Date: 20231110
  Transmission Date: 20240109
  Serious: Yes (Death, Other)
  Sender: FDA-Public Use
  Company Number: JP-CHUGAI-2023037338AA

PATIENT
  Age: 8 Decade
  Sex: Male
  Weight: 62 kg

DRUGS (11)
  1. TECENTRIQ [Suspect]
     Active Substance: ATEZOLIZUMAB
     Indication: Hepatocellular carcinoma
     Route: 065
     Dates: start: 20210616, end: 20230126
  2. AVASTIN [Suspect]
     Active Substance: BEVACIZUMAB
     Indication: Hepatocellular carcinoma
     Route: 065
     Dates: start: 20210616, end: 20230126
  3. AZOSEMIDE [Suspect]
     Active Substance: AZOSEMIDE
     Indication: Cardiac failure congestive
     Route: 065
     Dates: start: 20221026, end: 20230308
  4. VEMLIDY [Concomitant]
     Active Substance: TENOFOVIR ALAFENAMIDE FUMARATE
     Indication: Hepatic cirrhosis
     Dosage: 25 MILLIGRAM, QD
     Dates: start: 20211110, end: 20230118
  5. VEMLIDY [Concomitant]
     Active Substance: TENOFOVIR ALAFENAMIDE FUMARATE
     Indication: Hepatitis B
  6. ENTECAVIR [Concomitant]
     Active Substance: ENTECAVIR
     Dosage: ONCE/2DAYS
     Dates: end: 20211109
  7. ENTECAVIR [Concomitant]
     Active Substance: ENTECAVIR
     Dosage: ONCE/3DAYS
     Dates: start: 20230118, end: 2023
  8. ENTRESTO [Concomitant]
     Active Substance: SACUBITRIL\VALSARTAN
     Dosage: UNK
     Dates: start: 20210922, end: 20230308
  9. CARVEDILOL [Concomitant]
     Active Substance: CARVEDILOL
     Dosage: UNK
     Dates: start: 20210922, end: 20230308
  10. SAMSCA [Concomitant]
     Active Substance: TOLVAPTAN
     Dosage: UNK
     Dates: start: 20230205, end: 20230308
  11. ESAXERENONE [Concomitant]
     Active Substance: ESAXERENONE
     Dosage: UNK
     Dates: start: 20210922, end: 20230308

REACTIONS (3)
  - Renal disorder [Recovering/Resolving]
  - Hepatocellular carcinoma [Fatal]
  - Hepatic cirrhosis [Unknown]

NARRATIVE: CASE EVENT DATE: 20230711
